FAERS Safety Report 26162334 (Version 1)
Quarter: 2025Q4

REPORT INFORMATION
  Report Type: Report from Study
  Country: US (occurrence: None)
  Receive Date: 20251216
  Receipt Date: 20251216
  Transmission Date: 20260118
  Serious: No
  Sender: IONIS PHARMACEUTICALS
  Company Number: US-IONIS PHARMACEUTICALS, INC.-2025IS003779

PATIENT
  Age: 47 Year

DRUGS (1)
  1. TRYNGOLZA [Suspect]
     Active Substance: OLEZARSEN SODIUM
     Indication: Familial hypertriglyceridaemia
     Dosage: 80 MILLIGRAM, Q1M

REACTIONS (2)
  - Injection site pain [Recovered/Resolved]
  - Injection site erythema [Recovered/Resolved]
